FAERS Safety Report 9563324 (Version 2)
Quarter: 2014Q3

REPORT INFORMATION
  Report Type: Spontaneous
  Country: US (occurrence: US)
  Receive Date: 20130927
  Receipt Date: 20140815
  Transmission Date: 20150326
  Serious: Yes (Other)
  Sender: FDA-Public Use
  Company Number: US-009507513-1309USA013624

PATIENT
  Sex: Female
  Weight: 73.92 kg

DRUGS (1)
  1. NUVARING [Suspect]
     Active Substance: ETHINYL ESTRADIOL\ETONOGESTREL
     Indication: CONTRACEPTION
     Dosage: UNK
     Route: 067
     Dates: start: 20120314

REACTIONS (25)
  - Hyperphagia [Unknown]
  - Headache [Unknown]
  - Muscle strain [Unknown]
  - Polyuria [Unknown]
  - Malaise [Unknown]
  - Anxiety disorder [Unknown]
  - Abnormal weight gain [Unknown]
  - Ovarian cyst [Unknown]
  - Fatigue [Unknown]
  - Hypoglycaemia [Unknown]
  - Varicose vein [Unknown]
  - Syncope [Unknown]
  - Embolism venous [Unknown]
  - Sinusitis [Unknown]
  - Neck mass [Unknown]
  - Insomnia [Unknown]
  - Musculoskeletal discomfort [Unknown]
  - Neck pain [Unknown]
  - Blindness [Unknown]
  - Thrombophlebitis superficial [Unknown]
  - Thyroid mass [Unknown]
  - Hydronephrosis [Unknown]
  - Rash [Unknown]
  - Spider vein [Unknown]
  - Depression [Unknown]

NARRATIVE: CASE EVENT DATE: 20120424
